FAERS Safety Report 13028487 (Version 1)
Quarter: 2016Q4

REPORT INFORMATION
  Report Type: Spontaneous
  Country: US (occurrence: US)
  Receive Date: 20161214
  Receipt Date: 20161214
  Transmission Date: 20170207
  Serious: Yes (Other)
  Sender: FDA-Public Use
  Company Number: US-BAYER-2016-234263

PATIENT
  Age: 63 Year
  Sex: Male
  Weight: 73.92 kg

DRUGS (1)
  1. BAYER ASPIRIN [Suspect]
     Active Substance: ASPIRIN
     Indication: CORONARY ARTERY BYPASS
     Dosage: 1 DF, UNK
     Route: 048
     Dates: start: 199603

REACTIONS (2)
  - Drug dependence [Unknown]
  - Product use issue [Unknown]

NARRATIVE: CASE EVENT DATE: 199603
